FAERS Safety Report 7438102-8 (Version None)
Quarter: 2011Q2

REPORT INFORMATION
  Report Type: 
  Country: None (occurrence: None)
  Receive Date: 20110426
  Receipt Date: 20110421
  Transmission Date: 20111010
  Serious: Yes (Hospitalization)
  Sender: FDA-Public Use
  Company Number: US-TEVA-277899USA

PATIENT
  Age: 65 Year
  Sex: Male

DRUGS (1)
  1. VINORELBINE TARTRATE [Suspect]
     Indication: METASTATIC NEOPLASM
     Route: 042

REACTIONS (2)
  - ACUTE CORONARY SYNDROME [None]
  - BRONCHOSPASM [None]
